FAERS Safety Report 15328520 (Version 1)
Quarter: 2018Q3

REPORT INFORMATION
  Report Type: Spontaneous
  Country: ES (occurrence: ES)
  Receive Date: 20180829
  Receipt Date: 20180829
  Transmission Date: 20181010
  Serious: Yes (Other)
  Sender: FDA-Public Use
  Company Number: ES-TEVA-2018-ES-949136

PATIENT
  Age: 77 Year
  Sex: Male

DRUGS (1)
  1. GABAPENTINA (2641A) [Suspect]
     Active Substance: GABAPENTIN
     Dosage: 300 MG/24 H
     Route: 065
     Dates: start: 20180803, end: 20180810

REACTIONS (1)
  - Hypertensive crisis [Recovered/Resolved]

NARRATIVE: CASE EVENT DATE: 20180809
